FAERS Safety Report 5098352-5 (Version None)
Quarter: 2006Q3

REPORT INFORMATION
  Report Type: 
  Country: None (occurrence: None)
  Receive Date: 20060906
  Receipt Date: 20060828
  Transmission Date: 20061208
  Serious: Yes (Other)
  Sender: FDA-Public Use
  Company Number: US-JNJFOC-20060806458

PATIENT
  Age: 45 Year
  Sex: Female
  Weight: 49.9 kg

DRUGS (3)
  1. ULTRAM [Suspect]
     Indication: BACK PAIN
     Route: 048
  2. KLONOPIN [Concomitant]
     Indication: ANXIETY
     Route: 048
  3. ZOLOFT [Concomitant]
     Route: 048

REACTIONS (5)
  - ABASIA [None]
  - ASTHENIA [None]
  - DIARRHOEA [None]
  - MUSCULAR WEAKNESS [None]
  - PYREXIA [None]
